FAERS Safety Report 17523415 (Version 1)
Quarter: 2020Q1

REPORT INFORMATION
  Report Type: Spontaneous
  Country: BE (occurrence: BE)
  Receive Date: 20200310
  Receipt Date: 20200310
  Transmission Date: 20200409
  Serious: Yes (Death)
  Sender: FDA-Public Use
  Company Number: NVSC2020BE065704

PATIENT
  Sex: Female
  Weight: 65 kg

DRUGS (9)
  1. OMEPRAZOLE. [Suspect]
     Active Substance: OMEPRAZOLE
     Indication: PRODUCT USED FOR UNKNOWN INDICATION
     Dosage: UNK
     Route: 065
     Dates: start: 201401
  2. BURINEX [Concomitant]
     Active Substance: BUMETANIDE
     Indication: PRODUCT USED FOR UNKNOWN INDICATION
     Dosage: 7.5 MG, QW
     Route: 065
  3. NEXIAM [Suspect]
     Active Substance: ESOMEPRAZOLE
     Indication: GASTRIC ULCER HAEMORRHAGE
     Dosage: UNK
     Route: 065
     Dates: start: 201905
  4. SINTROM [Suspect]
     Active Substance: ACENOCOUMAROL
     Indication: PRODUCT USED FOR UNKNOWN INDICATION
     Dosage: UNK
     Route: 065
     Dates: start: 2014
  5. LEDERTREXATE [Suspect]
     Active Substance: METHOTREXATE
     Indication: PRODUCT USED FOR UNKNOWN INDICATION
     Dosage: 1 DF, QW
     Route: 065
     Dates: start: 2000, end: 2001
  6. PANTOMED (PANTOPRAZOLE SODIUM SESQUIHYDRATE) [Suspect]
     Active Substance: PANTOPRAZOLE SODIUM
     Indication: PRODUCT USED FOR UNKNOWN INDICATION
     Dosage: UNK
     Route: 065
     Dates: start: 201410, end: 2016
  7. SPIRONOLACTONE. [Concomitant]
     Active Substance: SPIRONOLACTONE
     Indication: PRODUCT USED FOR UNKNOWN INDICATION
     Dosage: 1 DF, QW (INCREASED IN 2015)
     Route: 065
  8. ALDACTONE [Concomitant]
     Active Substance: SPIRONOLACTONE
     Indication: PRODUCT USED FOR UNKNOWN INDICATION
     Dosage: 200 MG, QD
     Route: 065
  9. LANSOPRAZOLE. [Concomitant]
     Active Substance: LANSOPRAZOLE
     Indication: PRODUCT USED FOR UNKNOWN INDICATION
     Dosage: UNK
     Route: 065
     Dates: start: 201207

REACTIONS (26)
  - Coma [Fatal]
  - Encephalopathy [Fatal]
  - Blood creatinine increased [Fatal]
  - Dyspnoea [Fatal]
  - Gastritis [Fatal]
  - Hepatic cirrhosis [Fatal]
  - Fatigue [Fatal]
  - Constipation [Fatal]
  - Renal impairment [Fatal]
  - Renal injury [Fatal]
  - Lip haemorrhage [Fatal]
  - Ascites [Fatal]
  - Skin disorder [Fatal]
  - Hypertension [Fatal]
  - Varices oesophageal [Fatal]
  - Gastrointestinal ulcer [Fatal]
  - Tubulointerstitial nephritis [Fatal]
  - Malaise [Fatal]
  - Blood urea increased [Fatal]
  - Somnolence [Fatal]
  - Dry mouth [Fatal]
  - Confusional state [Fatal]
  - Renal failure [Fatal]
  - Blood test abnormal [Fatal]
  - Hepatic fibrosis [Fatal]
  - Yellow skin [Fatal]

NARRATIVE: CASE EVENT DATE: 200106
